FAERS Safety Report 19106732 (Version 1)
Quarter: 2021Q2

REPORT INFORMATION
  Report Type: Spontaneous
  Country: CN (occurrence: CN)
  Receive Date: 20210408
  Receipt Date: 20210408
  Transmission Date: 20210717
  Serious: Yes (Hospitalization, Other)
  Sender: FDA-Public Use
  Company Number: CN-GRANULES-CN-2021GRALIT00231

PATIENT
  Age: 12 Year
  Sex: Male

DRUGS (3)
  1. FASTIN [CLOTRIMAZOLE] [Interacting]
     Active Substance: CLOTRIMAZOLE
     Indication: PANCREATITIS ACUTE
     Route: 065
  2. SOMATOSTATIN [Interacting]
     Active Substance: SOMATOSTATIN
     Indication: PANCREATITIS ACUTE
     Route: 065
  3. ACETAMINOPHEN. [Suspect]
     Active Substance: ACETAMINOPHEN
     Indication: PRODUCT USED FOR UNKNOWN INDICATION
     Route: 065

REACTIONS (2)
  - Stevens-Johnson syndrome [Recovered/Resolved]
  - Pancreatitis acute [Unknown]
